FAERS Safety Report 7523575-2 (Version None)
Quarter: 2011Q2

REPORT INFORMATION
  Report Type: 
  Country: None (occurrence: None)
  Receive Date: 20110603
  Receipt Date: 20110601
  Transmission Date: 20111010
  Serious: No
  Sender: FDA-Public Use
  Company Number: US-TEVA-283536USA

PATIENT
  Sex: Female
  Weight: 81.72 kg

DRUGS (3)
  1. PLAN B ONE-STEP [Suspect]
     Indication: POST COITAL CONTRACEPTION
     Dosage: 1.5 MILLIGRAM;
     Route: 048
     Dates: start: 20110522, end: 20110522
  2. TOPAMAX [Concomitant]
     Indication: WEIGHT DECREASED
     Dosage: 3 MILLIGRAM;
     Dates: start: 20110520
  3. ADIPEX [Concomitant]
     Indication: WEIGHT DECREASED
     Dosage: 37.5 MILLIGRAM;
     Dates: start: 20110520

REACTIONS (3)
  - HOT FLUSH [None]
  - PELVIC PAIN [None]
  - ABDOMINAL DISCOMFORT [None]
